FAERS Safety Report 4408495-4 (Version None)
Quarter: 2004Q3

REPORT INFORMATION
  Report Type: 
  Country: None (occurrence: None)
  Receive Date: 20040723
  Receipt Date: 20040721
  Transmission Date: 20050211
  Serious: Yes (Death)
  Sender: FDA-Public Use
  Company Number: THQ2003A01421

PATIENT
  Age: 53 Year
  Sex: Female

DRUGS (5)
  1. LANSOPRAZOLE [Suspect]
     Indication: DUODENITIS
     Dosage: 30 MG PER ORAL
     Route: 048
     Dates: start: 20030827
  2. LANSOPRAZOLE [Suspect]
     Indication: GASTRITIS
     Dosage: 30 MG PER ORAL
     Route: 048
     Dates: start: 20030827
  3. LANSOPRAZOLE [Suspect]
     Indication: HIATUS HERNIA
     Dosage: 30 MG PER ORAL
     Route: 048
     Dates: start: 20030827
  4. PREMPAK-C (PREMPAK/ OLD FORM) [Concomitant]
  5. PAROXETINE HCL [Concomitant]

REACTIONS (3)
  - ALCOHOL WITHDRAWAL SYNDROME [None]
  - ASPIRATION [None]
  - EPILEPSY [None]
